FAERS Safety Report 10227741 (Version 2)
Quarter: 2014Q3

REPORT INFORMATION
  Report Type: Spontaneous
  Country: US (occurrence: US)
  Receive Date: 20140610
  Receipt Date: 20140722
  Transmission Date: 20150326
  Serious: Yes (Hospitalization)
  Sender: FDA-Public Use
  Company Number: US-BAXTER-2014BAX029526

PATIENT
  Age: 68 Year
  Sex: Female
  Weight: 58.57 kg

DRUGS (11)
  1. RENVELA [Concomitant]
     Active Substance: SEVELAMER CARBONATE
     Route: 048
  2. COUMADIN [Concomitant]
     Active Substance: WARFARIN SODIUM
     Indication: ADVERSE EVENT
  3. COUMADIN [Concomitant]
     Active Substance: WARFARIN SODIUM
  4. EXTRANEAL [Suspect]
     Active Substance: CALCIUM CHLORIDE\ICODEXTRIN\MAGNESIUM CHLORIDE\SODIUM CHLORIDE\SODIUM LACTATE
     Indication: PERITONEAL DIALYSIS
     Route: 033
  5. LOVENOX [Concomitant]
     Active Substance: ENOXAPARIN SODIUM
     Indication: ADVERSE EVENT
     Route: 058
  6. DIANEAL LOW CALCIUM PERITONEAL DIALYSIS SOLUTION WITH DEXTROSE [Suspect]
     Active Substance: CALCIUM CHLORIDE\DEXTROSE\MAGNESIUM CHLORIDE\SODIUM CHLORIDE\SODIUM LACTATE
     Indication: PERITONEAL DIALYSIS
     Route: 033
     Dates: start: 20110603
  7. NEPHROVITE [Concomitant]
     Indication: ADVERSE EVENT
     Route: 048
  8. RENVELA [Concomitant]
     Active Substance: SEVELAMER CARBONATE
     Indication: ADVERSE EVENT
     Route: 048
  9. CLARITIN [Concomitant]
     Active Substance: LORATADINE
     Indication: ADVERSE EVENT
     Route: 048
  10. PROTONIX [Concomitant]
     Active Substance: PANTOPRAZOLE SODIUM
     Indication: ADVERSE EVENT
     Route: 048
  11. FERROUS SULFATE [Concomitant]
     Active Substance: FERROUS SULFATE\FERROUS SULFATE, DRIED
     Indication: ADVERSE EVENT
     Route: 048

REACTIONS (10)
  - Renal failure chronic [Unknown]
  - Pleural effusion [Unknown]
  - Drug intolerance [Unknown]
  - Abdominal discomfort [Recovered/Resolved]
  - Mental status changes [Unknown]
  - Anaemia [Unknown]
  - Drug dose omission [Unknown]
  - Anxiety [Unknown]
  - Abdominal pain [Recovering/Resolving]
  - Fluid overload [Recovered/Resolved]

NARRATIVE: CASE EVENT DATE: 20120822
